FAERS Safety Report 23157344 (Version 1)
Quarter: 2023Q4

REPORT INFORMATION
  Report Type: Spontaneous
  Country: CN (occurrence: CN)
  Receive Date: 20231108
  Receipt Date: 20231108
  Transmission Date: 20240109
  Serious: Yes (Hospitalization, Other)
  Sender: FDA-Public Use
  Company Number: None

PATIENT
  Age: 61 Year
  Sex: Female
  Weight: 58 kg

DRUGS (6)
  1. CYCLOPHOSPHAMIDE [Suspect]
     Active Substance: CYCLOPHOSPHAMIDE
     Indication: Breast cancer female
     Dosage: 0.88 G, ONE IN 21 DAYS, DILUTED WITH 50 ML OF 0.9 % SODIUM CHLORIDE, FIRST CYCLE OF CHEMOTHERAPY
     Route: 042
     Dates: start: 20231012, end: 20231012
  2. SODIUM CHLORIDE [Suspect]
     Active Substance: SODIUM CHLORIDE
     Indication: Medication dilution
     Dosage: 50 ML, ONE IN 21 DAYS, USED TO DILUTE 0.88 G OF CYCLOPHOSPHAMIDE, FIRST CYCLE OF CHEMOTHERAPY
     Route: 042
     Dates: start: 20231012, end: 20231012
  3. SODIUM CHLORIDE [Suspect]
     Active Substance: SODIUM CHLORIDE
     Dosage: 250 ML, ONE IN 21 DAYS, USED TO DILUTE 440 MG OF HERCEPTIN, FIRST CYCLE OF CHEMOTHERAPY
     Route: 041
     Dates: start: 20231012, end: 20231012
  4. DEXTROSE [Suspect]
     Active Substance: DEXTROSE\DEXTROSE MONOHYDRATE
     Indication: Medication dilution
     Dosage: 500 ML, ONE IN 21 DAYS, USED TO DILUTE 110 MG OF DOCETAXEL, FIRST CYCLE OF CHEMOTHERAPY
     Route: 041
     Dates: start: 20231012, end: 20231012
  5. DOCETAXEL [Suspect]
     Active Substance: DOCETAXEL\DOCETAXEL ANHYDROUS
     Indication: Breast cancer female
     Dosage: 110 MG, ONE IN 21 DAYS, DILUTED WITH 500 ML OF 5 % GLUCOSE, FIRST CYCLE OF CHEMOTHERAPY
     Route: 041
     Dates: start: 20231012, end: 20231012
  6. HERCEPTIN [Suspect]
     Active Substance: TRASTUZUMAB
     Indication: Breast cancer female
     Dosage: 440 MG, ONE IN 21 DAYS, DILUTED WITH 250 ML OF 0.9 % SODIUM CHLORIDE, FIRST CYCLE OF CHEMOTHERAPY
     Route: 041
     Dates: start: 20231012, end: 20231012

REACTIONS (2)
  - Myelosuppression [Recovered/Resolved]
  - Asthenia [Recovered/Resolved]

NARRATIVE: CASE EVENT DATE: 20231021
